FAERS Safety Report 5360220-9 (Version None)
Quarter: 2007Q2

REPORT INFORMATION
  Report Type: 
  Country: None (occurrence: None)
  Receive Date: 20070530
  Receipt Date: 20070209
  Transmission Date: 20071010
  Serious: No
  Sender: FDA-Public Use
  Company Number: 2007PV029906

PATIENT
  Age: 59 Year
  Sex: Female
  Weight: 119.7496 kg

DRUGS (12)
  1. BYETTA [Suspect]
     Indication: DIABETES MELLITUS NON-INSULIN-DEPENDENT
     Dosage: 5 MCG; BID; SC
     Dates: start: 20061201
  2. METFORMIN HCL [Concomitant]
  3. GLUMETZA [Concomitant]
  4. DUETACT [Concomitant]
  5. CYMBALTA [Concomitant]
  6. LYRICA [Concomitant]
  7. DIOVAN HCT [Concomitant]
  8. AMOXICILLIN [Concomitant]
  9. NEXIUM [Concomitant]
  10. RESTORIL [Concomitant]
  11. ADVAIR DISKUS 100/50 [Concomitant]
  12. ALBUTEROL [Concomitant]

REACTIONS (9)
  - ASTHENIA [None]
  - CONFUSIONAL STATE [None]
  - DENTAL TREATMENT [None]
  - DIZZINESS [None]
  - DYSARTHRIA [None]
  - FATIGUE [None]
  - FEELING DRUNK [None]
  - HYPOAESTHESIA [None]
  - LETHARGY [None]
